FAERS Safety Report 10404998 (Version 1)
Quarter: 2014Q3

REPORT INFORMATION
  Report Type: Report from Study
  Country: GB (occurrence: GB)
  Receive Date: 20140825
  Receipt Date: 20140825
  Transmission Date: 20150326
  Serious: Yes (Hospitalization)
  Sender: FDA-Public Use
  Company Number: GB-BIOGENIDEC-2014BI084443

PATIENT
  Age: 34 Year
  Sex: Female

DRUGS (1)
  1. AVONEX [Suspect]
     Active Substance: INTERFERON BETA-1A
     Indication: RELAPSING-REMITTING MULTIPLE SCLEROSIS
     Route: 030
     Dates: start: 20140801

REACTIONS (6)
  - Cyanosis [Unknown]
  - General physical health deterioration [Unknown]
  - Mobility decreased [Unknown]
  - Dyspnoea [Unknown]
  - Vomiting [Unknown]
  - Jaundice [Unknown]

NARRATIVE: CASE EVENT DATE: 20140801
